FAERS Safety Report 16208534 (Version 1)
Quarter: 2019Q2

REPORT INFORMATION
  Report Type: Spontaneous
  Country: NL (occurrence: FR)
  Receive Date: 20190417
  Receipt Date: 20190417
  Transmission Date: 20190711
  Serious: Yes (Disabling)
  Sender: FDA-Public Use
  Company Number: FR-FRESENIUS KABI-FK201903926

PATIENT
  Age: 50 Year
  Sex: Male

DRUGS (1)
  1. ROPIVACAINE FRESENIUS KABI (NOT SPECIFIED) [Suspect]
     Active Substance: ROPIVACAINE
     Indication: LOCAL ANAESTHESIA
     Route: 031
     Dates: start: 20190208, end: 20190208

REACTIONS (2)
  - Retinal artery occlusion [Recovering/Resolving]
  - Blindness unilateral [Recovering/Resolving]

NARRATIVE: CASE EVENT DATE: 20190208
